FAERS Safety Report 18813860 (Version 2)
Quarter: 2025Q3

REPORT INFORMATION
  Report Type: Spontaneous
  Country: US (occurrence: US)
  Receive Date: 20210201
  Receipt Date: 20250718
  Transmission Date: 20251021
  Serious: Yes (Hospitalization, Other)
  Sender: AUROBINDO
  Company Number: US-MLMSERVICE-20210120-2686958-1

PATIENT
  Age: 22 Year
  Sex: Female

DRUGS (1)
  1. LAMOTRIGINE [Suspect]
     Active Substance: LAMOTRIGINE
     Indication: Borderline personality disorder
     Route: 065

REACTIONS (7)
  - Delirium [Unknown]
  - Agitation [Unknown]
  - Rash [Unknown]
  - Toxicity to various agents [Unknown]
  - Confusional state [Unknown]
  - Pyrexia [Unknown]
  - Overdose [Unknown]
